FAERS Safety Report 8448673-0 (Version None)
Quarter: 2012Q2

REPORT INFORMATION
  Report Type: 
  Country: None (occurrence: None)
  Receive Date: 20120619
  Receipt Date: 20120613
  Transmission Date: 20120825
  Serious: Yes (Life-Threatening, Hospitalization)
  Sender: FDA-Public Use
  Company Number: FR-MERCK-1106FRA00064

PATIENT
  Age: 80 Year
  Sex: Male
  Weight: 72 kg

DRUGS (6)
  1. JANUVIA [Concomitant]
     Indication: TYPE 2 DIABETES MELLITUS
     Route: 048
     Dates: start: 20101217, end: 20110411
  2. INSULIN GLARGINE [Concomitant]
     Route: 051
     Dates: end: 20101216
  3. JANUMET [Suspect]
     Route: 048
     Dates: start: 20110412
  4. METFORMIN [Concomitant]
     Indication: TYPE 2 DIABETES MELLITUS
     Route: 048
     Dates: start: 20101217, end: 20110411
  5. METFORMIN [Concomitant]
     Route: 048
     Dates: start: 20110412
  6. JANUMET [Suspect]
     Indication: TYPE 2 DIABETES MELLITUS
     Route: 048
     Dates: start: 20101008, end: 20101216

REACTIONS (1)
  - CHOLECYSTITIS ACUTE [None]
